APPROVED DRUG PRODUCT: HYDROXYSTILBAMIDINE ISETHIONATE
Active Ingredient: HYDROXYSTILBAMIDINE ISETHIONATE
Strength: 225MG/AMP
Dosage Form/Route: INJECTABLE;INJECTION
Application: N009166 | Product #001
Applicant: SANOFI AVENTIS US LLC
Approved: Approved Prior to Jan 1, 1982 | RLD: No | RS: No | Type: DISCN